FAERS Safety Report 16987346 (Version 1)
Quarter: 2019Q4

REPORT INFORMATION
  Report Type: Spontaneous
  Country: NG (occurrence: NG)
  Receive Date: 20191102
  Receipt Date: 20191102
  Transmission Date: 20200122
  Serious: Yes (Death)
  Sender: FDA-Public Use
  Company Number: NG-MICRO LABS LIMITED-ML2019-02971

PATIENT

DRUGS (3)
  1. LAMIVUDINE. [Suspect]
     Active Substance: LAMIVUDINE
  2. ZIDOVUDINE. [Suspect]
     Active Substance: ZIDOVUDINE
  3. NEVIRAPINE. [Suspect]
     Active Substance: NEVIRAPINE

REACTIONS (2)
  - Cough [Fatal]
  - Oedema peripheral [Fatal]
